FAERS Safety Report 11276692 (Version 1)
Quarter: 2015Q2

REPORT INFORMATION
  Report Type: Spontaneous
  Country: US (occurrence: None)
  Receive Date: 20150625
  Receipt Date: 20150625
  Transmission Date: 20150821
  Serious: No
  Sender: FDA-Public Use
  Company Number: A-US2015-116272

PATIENT
  Age: 69 Year
  Sex: Female

DRUGS (12)
  1. PAROXETINE [Concomitant]
     Active Substance: PAROXETINE\PAROXETINE HYDROCHLORIDE
  2. SPIRONOLACTONE. [Concomitant]
     Active Substance: SPIRONOLACTONE
  3. OMEPRAZOLE. [Concomitant]
     Active Substance: OMEPRAZOLE
  4. SILDENAFIL. [Concomitant]
     Active Substance: SILDENAFIL
  5. ENALAPRIL [Concomitant]
     Active Substance: ENALAPRIL
  6. FUROSEMIDE. [Concomitant]
     Active Substance: FUROSEMIDE
  7. WARFARIN [Concomitant]
     Active Substance: WARFARIN
  8. METOCLOPRAMIDE. [Concomitant]
     Active Substance: METOCLOPRAMIDE
  9. TREPROSTINIL [Suspect]
     Active Substance: TREPROSTINIL
     Indication: PRODUCT USED FOR UNKNOWN INDICATION
  10. AMLODIPINE [Concomitant]
     Active Substance: AMLODIPINE BESYLATE
  11. OPSUMIT [Suspect]
     Active Substance: MACITENTAN
     Indication: PULMONARY ARTERIAL HYPERTENSION
     Route: 048
     Dates: start: 20140806
  12. METOPROLOL [Concomitant]
     Active Substance: METOPROLOL

REACTIONS (5)
  - Dyspnoea [None]
  - Headache [None]
  - Musculoskeletal stiffness [None]
  - Palpitations [None]
  - Muscular weakness [None]

NARRATIVE: CASE EVENT DATE: 20150407
